FAERS Safety Report 7590674-9 (Version None)
Quarter: 2011Q3

REPORT INFORMATION
  Report Type: 
  Country: None (occurrence: None)
  Receive Date: 20110705
  Receipt Date: 20110623
  Transmission Date: 20111222
  Serious: Yes (Other)
  Sender: FDA-Public Use
  Company Number: PHHY2011FR56129

PATIENT
  Age: 2 Year
  Sex: Male

DRUGS (3)
  1. SULFAMETHOXAZOLE AND TRIMETHOPRIM [Suspect]
     Indication: EPIDURITIS
  2. RIFAMPICIN [Concomitant]
     Dosage: UNK
  3. CEFOTAXIME [Concomitant]
     Dosage: UNK

REACTIONS (13)
  - RASH GENERALISED [None]
  - CYTOLYTIC HEPATITIS [None]
  - DRUG RASH WITH EOSINOPHILIA AND SYSTEMIC SYMPTOMS [None]
  - HYPERTHERMIA [None]
  - HYPERSENSITIVITY [None]
  - HEPATOSPLENOMEGALY [None]
  - CHOLESTASIS [None]
  - OEDEMA [None]
  - PRURITUS [None]
  - ASTHENIA [None]
  - LEUKOCYTOSIS [None]
  - LYMPHADENITIS [None]
  - HUMAN HERPESVIRUS 6 INFECTION [None]
